FAERS Safety Report 7785670-2 (Version None)
Quarter: 2011Q3

REPORT INFORMATION
  Report Type: 
  Country: None (occurrence: None)
  Receive Date: 20110929
  Receipt Date: 20110929
  Transmission Date: 20111222
  Serious: Yes (Other)
  Sender: FDA-Public Use
  Company Number: None

PATIENT
  Age: 46 Year
  Sex: Female
  Weight: 63.502 kg

DRUGS (1)
  1. CITRUCEL ORANGE [Suspect]
     Indication: CONSTIPATION
     Dosage: 2G
     Route: 048
     Dates: start: 20090501, end: 20110815

REACTIONS (5)
  - MUSCLE SPASMS [None]
  - ELECTROENCEPHALOGRAM ABNORMAL [None]
  - PALPITATIONS [None]
  - NEUROLOGICAL SYMPTOM [None]
  - AMNESIA [None]
